FAERS Safety Report 10191765 (Version 1)
Quarter: 2014Q2

REPORT INFORMATION
  Report Type: Spontaneous
  Country: JP (occurrence: JP)
  Receive Date: 20140523
  Receipt Date: 20140523
  Transmission Date: 20141212
  Serious: Yes (Other)
  Sender: FDA-Public Use
  Company Number: JP-WATSON-2014-10713

PATIENT
  Age: 46 Year
  Sex: Male

DRUGS (3)
  1. PREGABALIN (UNKNOWN) [Suspect]
     Indication: ANXIETY
     Dosage: 75 MG, DAILY
     Route: 065
  2. PREGABALIN (UNKNOWN) [Interacting]
     Dosage: 300 MG, DAILY
     Route: 065
  3. MILNACIPRAN (UNKNOWN) [Interacting]
     Indication: ANXIETY
     Dosage: 100 MG, DAILY
     Route: 065

REACTIONS (2)
  - Mania [Recovered/Resolved]
  - Drug interaction [Recovered/Resolved]
